FAERS Safety Report 22652151 (Version 1)
Quarter: 2023Q2

REPORT INFORMATION
  Report Type: Spontaneous
  Country: US (occurrence: US)
  Receive Date: 20230628
  Receipt Date: 20230628
  Transmission Date: 20230722
  Serious: No
  Sender: FDA-Public Use
  Company Number: US-KARYOPHARM-2023KPT001470

PATIENT

DRUGS (9)
  1. XPOVIO [Suspect]
     Active Substance: SELINEXOR
     Indication: Plasma cell myeloma
     Dosage: 40 MG, WEEKLY
     Route: 048
     Dates: start: 20230612
  2. AMOXICILLIN [Concomitant]
     Active Substance: AMOXICILLIN
  3. DEXAMETHASONE [Concomitant]
     Active Substance: DEXAMETHASONE
  4. DEXTROSE [Concomitant]
     Active Substance: DEXTROSE\DEXTROSE MONOHYDRATE
  5. KYPROLIS [Concomitant]
     Active Substance: CARFILZOMIB
  6. ONDANSETRON [Concomitant]
     Active Substance: ONDANSETRON
  7. PERCOCET [Concomitant]
     Active Substance: ACETAMINOPHEN\OXYCODONE HYDROCHLORIDE
  8. TRAMADOL [Concomitant]
     Active Substance: TRAMADOL
  9. ZOLEDRONIC ACID [Concomitant]
     Active Substance: ZOLEDRONIC ACID

REACTIONS (1)
  - Nausea [Unknown]

NARRATIVE: CASE EVENT DATE: 20230601
